FAERS Safety Report 4886929-9 (Version None)
Quarter: 2006Q1

REPORT INFORMATION
  Report Type: 
  Country: None (occurrence: None)
  Receive Date: 20060118
  Receipt Date: 20060105
  Transmission Date: 20060701
  Serious: Yes (Other)
  Sender: FDA-Public Use
  Company Number: US200512004467

PATIENT
  Age: 67 Year
  Sex: Male
  Weight: 81.6 kg

DRUGS (11)
  1. ALIMTA [Suspect]
     Indication: PERITONEAL MESOTHELIOMA MALIGNANT
     Dosage: 980 MG, OTHER
     Route: 050
     Dates: start: 20050411
  2. CISPLATIN [Concomitant]
  3. CARBOPLATIN [Concomitant]
  4. CHROMAGEN (ASCORBIC ACID, CYANOCOBALAMIN, FERROUS FUMARATE, STOMACH DE [Concomitant]
  5. LEVOTHYROXINE SODIUM [Concomitant]
  6. ACIPHEX [Concomitant]
  7. FLOMAX [Concomitant]
  8. LISINOPRIL [Concomitant]
  9. HYDROCHLOROTHIAZOLE (HYDROCHLOROTHIAZOLE) [Concomitant]
  10. DETROL - SLOW RELEASE (TOLTERODINE L TARTRATE) [Concomitant]
  11. COLACE (DOCUSATE SODIUM) [Concomitant]

REACTIONS (5)
  - ARTHRALGIA [None]
  - JOINT EFFUSION [None]
  - MUSCULOSKELETAL STIFFNESS [None]
  - OEDEMA PERIPHERAL [None]
  - POLYNEUROPATHY [None]
